FAERS Safety Report 6346780-X (Version None)
Quarter: 2009Q3

REPORT INFORMATION
  Report Type: 
  Country: None (occurrence: None)
  Receive Date: 20090910
  Receipt Date: 20080319
  Transmission Date: 20100115
  Serious: Yes (Hospitalization, Other)
  Sender: FDA-Public Use
  Company Number: US-ASTRAZENECA-2007UW20410

PATIENT
  Age: 11365 Day
  Sex: Female
  Weight: 106.1 kg

DRUGS (19)
  1. SEROQUEL [Suspect]
     Indication: BIPOLAR DISORDER
     Route: 048
     Dates: start: 20010101
  2. SEROQUEL [Suspect]
     Indication: ANXIETY
     Route: 048
     Dates: start: 20010101
  3. SEROQUEL [Suspect]
     Dosage: 200-800 MG DAILY
     Route: 048
     Dates: start: 20030227
  4. SEROQUEL [Suspect]
     Dosage: 200-800 MG DAILY
     Route: 048
     Dates: start: 20030227
  5. RISPERDAL [Concomitant]
  6. ZYPREXA [Concomitant]
  7. XANAX [Concomitant]
     Dosage: 0.75-6 MG DAILY
     Dates: start: 20000302
  8. KLONOPIN [Concomitant]
     Dosage: 2-6 MG DAILY
     Dates: start: 20070214
  9. BONIVA [Concomitant]
     Dosage: 150-168.75 MG PER MONTH
     Dates: start: 20070214
  10. DETROL LA [Concomitant]
     Route: 048
     Dates: start: 20070214
  11. MACRODANTIN [Concomitant]
     Route: 048
  12. TEGRETOL [Concomitant]
     Indication: MOOD SWINGS
     Dosage: 200-800 MG
     Dates: start: 20000627
  13. LITHIUM CARBONATE [Concomitant]
     Dates: start: 20020929
  14. TRAZODONE [Concomitant]
     Dosage: 100-150 MG AT NIGHT
     Dates: start: 20000627
  15. CLARITIN [Concomitant]
     Dates: start: 20020929
  16. AZMACORT [Concomitant]
     Dosage: 2 PUFFS THRICE DAILY
     Dates: start: 20020929
  17. LAMICTAL [Concomitant]
     Dates: start: 20071123
  18. CELEXA [Concomitant]
     Dosage: 10-40 MG DAILY
     Dates: start: 20000302
  19. RITALIN [Concomitant]
     Indication: SLEEP DISORDER
     Dosage: 15-30 MG DAILY
     Dates: start: 20000302

REACTIONS (3)
  - DIABETES MELLITUS [None]
  - GESTATIONAL DIABETES [None]
  - TYPE 2 DIABETES MELLITUS [None]
